FAERS Safety Report 5398708-7 (Version None)
Quarter: 2007Q3

REPORT INFORMATION
  Report Type: 
  Country: None (occurrence: None)
  Receive Date: 20070726
  Receipt Date: 20070529
  Transmission Date: 20080115
  Serious: No
  Sender: FDA-Public Use
  Company Number: US-AMGEN-KDL220244

PATIENT
  Sex: Female

DRUGS (18)
  1. EPOGEN [Suspect]
     Indication: DIALYSIS
     Route: 042
     Dates: start: 20060407
  2. IRON [Concomitant]
     Route: 042
  3. NIFEDIPINE [Concomitant]
     Route: 048
     Dates: start: 20070219
  4. PHOSLO [Concomitant]
     Route: 048
     Dates: start: 20070219
  5. COREG [Concomitant]
     Route: 048
     Dates: start: 20060912
  6. LEVOTHYROXINE SODIUM [Concomitant]
     Route: 048
     Dates: start: 20061219
  7. DOXAZOSIN MESYLATE [Concomitant]
     Route: 048
     Dates: start: 20061219
  8. DIGOXIN [Concomitant]
  9. PROTONIX [Concomitant]
     Route: 048
     Dates: start: 20061208
  10. HYDRALAZINE HCL [Concomitant]
     Route: 048
     Dates: start: 20060912
  11. ASPIRIN [Concomitant]
     Route: 048
     Dates: start: 20060912
  12. FERROUS SULFATE [Concomitant]
     Route: 048
     Dates: start: 20060912
  13. FERRLECIT [Concomitant]
     Route: 042
  14. DIPHENHYDRAMINE HCL [Concomitant]
     Route: 048
     Dates: start: 20060912
  15. NITROGLYCERIN [Concomitant]
     Route: 060
  16. CLONIDINE [Concomitant]
  17. LASIX [Concomitant]
     Dates: start: 20060801
  18. ISOSORBIDE DINITRATE [Concomitant]
     Dates: start: 20060801

REACTIONS (6)
  - DRUG INEFFECTIVE [None]
  - LYMPHADENOPATHY [None]
  - OEDEMA PERIPHERAL [None]
  - RETINAL VASCULAR DISORDER [None]
  - VIBRATION TEST ABNORMAL [None]
  - WEIGHT DECREASED [None]
